FAERS Safety Report 15419004 (Version 1)
Quarter: 2018Q3

REPORT INFORMATION
  Report Type: Spontaneous
  Country: US (occurrence: US)
  Receive Date: 20180924
  Receipt Date: 20180924
  Transmission Date: 20181010
  Serious: Yes (Disabling, Other)
  Sender: FDA-Public Use
  Company Number: US-JNJFOC-20180925983

PATIENT
  Age: 54 Year
  Sex: Male
  Weight: 99.79 kg

DRUGS (2)
  1. INVOKAMET [Suspect]
     Active Substance: CANAGLIFLOZIN\METFORMIN HYDROCHLORIDE
     Indication: PRODUCT USED FOR UNKNOWN INDICATION
     Route: 048
  2. INVOKANA [Suspect]
     Active Substance: CANAGLIFLOZIN
     Indication: PRODUCT USED FOR UNKNOWN INDICATION
     Route: 048

REACTIONS (4)
  - Leg amputation [Unknown]
  - Vascular insufficiency [Unknown]
  - Osteomyelitis chronic [Unknown]
  - Impaired healing [Unknown]

NARRATIVE: CASE EVENT DATE: 20161209
